FAERS Safety Report 17036868 (Version 2)
Quarter: 2019Q4

REPORT INFORMATION
  Report Type: Spontaneous
  Country: BR (occurrence: BR)
  Receive Date: 20191115
  Receipt Date: 20191120
  Transmission Date: 20200122
  Serious: Yes (Other)
  Sender: FDA-Public Use
  Company Number: BR-PFIZER INC-2019490616

PATIENT
  Sex: Male

DRUGS (1)
  1. CAVERJECT [Suspect]
     Active Substance: ALPROSTADIL
     Dosage: UNK MONTHLY: 4 TO 6 INJECTIONS PER MONTH
     Dates: start: 2015

REACTIONS (2)
  - Muscle injury [Unknown]
  - Spinal column injury [Unknown]

NARRATIVE: CASE EVENT DATE: 201503
